FAERS Safety Report 5776498-3 (Version None)
Quarter: 2008Q2

REPORT INFORMATION
  Report Type: 
  Country: None (occurrence: None)
  Receive Date: 20080617
  Receipt Date: 20080617
  Transmission Date: 20081010
  Serious: Yes (Life-Threatening, Hospitalization, Other)
  Sender: FDA-Public Use
  Company Number: None

PATIENT
  Age: 20 Year
  Sex: Female
  Weight: 72.5755 kg

DRUGS (1)
  1. SPRINTEC [Suspect]
     Indication: POLYCYSTIC OVARIES
     Dosage: 1 PILL ONCE A DAY PO
     Route: 048
     Dates: start: 20070511, end: 20080312

REACTIONS (3)
  - COAGULOPATHY [None]
  - HAEMATOCHEZIA [None]
  - PULMONARY EMBOLISM [None]
